FAERS Safety Report 10023479 (Version 1)
Quarter: 2014Q1

REPORT INFORMATION
  Report Type: Spontaneous
  Country: CA (occurrence: CA)
  Receive Date: 20140320
  Receipt Date: 20140320
  Transmission Date: 20141002
  Serious: Yes (Other)
  Sender: FDA-Public Use
  Company Number: CA-AMGEN-CANSP2014018292

PATIENT
  Age: 54 Year
  Sex: Female

DRUGS (2)
  1. ENBREL [Suspect]
     Indication: ANKYLOSING SPONDYLITIS
     Dosage: 50 MG, UNK
     Route: 065
     Dates: start: 20130314, end: 20131101
  2. LIPITOR [Concomitant]
     Dosage: UNK

REACTIONS (4)
  - Bladder disorder [Recovered/Resolved]
  - Urinary tract disorder [Recovered/Resolved]
  - Therapeutic response decreased [Unknown]
  - Injection site reaction [Unknown]
